FAERS Safety Report 7487785-5 (Version None)
Quarter: 2011Q2

REPORT INFORMATION
  Report Type: 
  Country: None (occurrence: None)
  Receive Date: 20110511
  Receipt Date: 20110428
  Transmission Date: 20111010
  Serious: Yes (Death)
  Sender: FDA-Public Use
  Company Number: 2011001807

PATIENT
  Age: 55 Year
  Sex: Male

DRUGS (10)
  1. NAIXAN (NAPROXEN SODIUM) [Concomitant]
  2. RINDERON (BETAMETHASONE) [Concomitant]
  3. CYTOTEC [Concomitant]
  4. MAGMITT (MAGNEDIUM OXIDE) [Concomitant]
  5. FAMOTIDINE [Concomitant]
  6. TARCEVA [Suspect]
     Indication: LUNG ADENOCARCINOMA
     Dosage: (150 MG,1 IN 1 D), ORAL
     Route: 048
     Dates: start: 20110321, end: 20110403
  7. LASIX [Concomitant]
  8. MUCOSTA (REBAMIPIDE) [Concomitant]
  9. DUROTEP (FENTANYL) [Concomitant]
  10. NOVAMIN (PROCHLORPERAZINE) [Concomitant]

REACTIONS (3)
  - DIARRHOEA [None]
  - PULMONARY EMBOLISM [None]
  - RESPIRATORY FAILURE [None]
